FAERS Safety Report 5766080-6 (Version None)
Quarter: 2008Q2

REPORT INFORMATION
  Report Type: 
  Country: None (occurrence: None)
  Receive Date: 20080605
  Receipt Date: 20080523
  Transmission Date: 20081010
  Serious: Yes (Death)
  Sender: FDA-Public Use
  Company Number: 2008001210

PATIENT
  Age: 51 Year
  Sex: Male

DRUGS (8)
  1. TARCEVA (ERLOTINIB) (TABLET) (EERLOTINIB) [Suspect]
     Indication: PANCREATIC CARCINOMA METASTATIC
     Dosage: 150 MG, QD, ORAL
     Route: 048
     Dates: start: 20080429
  2. GEMZAR [Suspect]
     Indication: PANCREATIC CARCINOMA METASTATIC
     Dosage: 1650 MG
     Dates: start: 20080429
  3. PLAVIX [Suspect]
     Dosage: 75 MG
  4. ACETYLSALICYLIC ACID SRT [Suspect]
  5. CRESTOR [Suspect]
     Dosage: 20 MG
  6. ACEMIN (LISINOPRIL) [Suspect]
  7. OXYCONTIN [Suspect]
     Dosage: 40 MG
  8. OXYCODONE HCL [Suspect]

REACTIONS (2)
  - MULTI-ORGAN FAILURE [None]
  - RENAL FAILURE ACUTE [None]
